FAERS Safety Report 7223099-6 (Version None)
Quarter: 2011Q1

REPORT INFORMATION
  Report Type: 
  Country: None (occurrence: None)
  Receive Date: 20110112
  Receipt Date: 20110106
  Transmission Date: 20110831
  Serious: Yes (Hospitalization)
  Sender: FDA-Public Use
  Company Number: JP-BRISTOL-MYERS SQUIBB COMPANY-15480130

PATIENT
  Age: 52 Year
  Sex: Female

DRUGS (7)
  1. BREDININ [Concomitant]
  2. GASPORT [Concomitant]
     Indication: PROPHYLAXIS
     Dosage: GASPORT-D
  3. CRESTOR [Concomitant]
  4. URSO 250 [Concomitant]
  5. PREDNISOLONE [Concomitant]
     Indication: RHEUMATOID ARTHRITIS
     Route: 048
  6. ORENCIA [Suspect]
     Dosage: 500MG ADMINSTERED ON 25OCT2010,08NOV2010 AND 22NOV2010(LAST DOSE)
     Route: 041
     Dates: start: 20101025
  7. CELECOXIB [Concomitant]
     Indication: RHEUMATOID ARTHRITIS

REACTIONS (1)
  - HEPATIC FUNCTION ABNORMAL [None]
